FAERS Safety Report 10233028 (Version 1)
Quarter: 2014Q2

REPORT INFORMATION
  Report Type: Spontaneous
  Country: US (occurrence: None)
  Receive Date: 20140611
  Receipt Date: 20140611
  Transmission Date: 20141212
  Serious: Yes (Other)
  Sender: FDA-Public Use
  Company Number: None

PATIENT
  Age: 26 Year
  Sex: Female
  Weight: 52.16 kg

DRUGS (1)
  1. IGNATIA [Suspect]
     Indication: FEELING OF RELAXATION

REACTIONS (10)
  - Hypersensitivity [None]
  - Burning sensation [None]
  - Swelling [None]
  - Hair disorder [None]
  - Diarrhoea [None]
  - Ear pain [None]
  - Paralysis [None]
  - Chest pain [None]
  - Loss of consciousness [None]
  - Cold sweat [None]
